FAERS Safety Report 5263418-3 (Version None)
Quarter: 2007Q1

REPORT INFORMATION
  Report Type: 
  Country: None (occurrence: None)
  Receive Date: 20070313
  Receipt Date: 20070306
  Transmission Date: 20070707
  Serious: Yes (Other)
  Sender: FDA-Public Use
  Company Number: 2007UW04228

PATIENT
  Age: 64 Year
  Sex: Female
  Weight: 80.7 kg

DRUGS (5)
  1. ARIMIDEX [Suspect]
     Indication: BREAST CANCER FEMALE
     Route: 048
     Dates: end: 20070201
  2. PROPRANOLOL [Concomitant]
  3. PREVACID [Concomitant]
  4. ALPRAZOLAM [Concomitant]
  5. LYRICA [Concomitant]

REACTIONS (3)
  - NEUROPATHY [None]
  - PAIN IN EXTREMITY [None]
  - PERIPHERAL MOTOR NEUROPATHY [None]
